FAERS Safety Report 15778964 (Version 3)
Quarter: 2019Q1

REPORT INFORMATION
  Report Type: Spontaneous
  Country: FR (occurrence: FR)
  Receive Date: 20190101
  Receipt Date: 20190131
  Transmission Date: 20190417
  Serious: Yes (Other)
  Sender: FDA-Public Use
  Company Number: FR-AUROBINDO-AUR-APL-2018-063482

PATIENT
  Age: 49 Year
  Sex: Male

DRUGS (8)
  1. TACROLIMUS. [Suspect]
     Active Substance: TACROLIMUS
     Indication: IMMUNOSUPPRESSANT DRUG THERAPY
     Dosage: 3 MILLIGRAM, ONCE A DAY
     Route: 065
  2. TACROLIMUS. [Suspect]
     Active Substance: TACROLIMUS
     Dosage: 1 MILLIGRAM, PER DAY
     Route: 065
     Dates: start: 2015
  3. SOFOSBUVIR [Suspect]
     Active Substance: SOFOSBUVIR
     Indication: HEPATITIS E
     Dosage: 400 MILLIGRAM DAILY;
     Route: 065
  4. RIBAVIRIN. [Suspect]
     Active Substance: RIBAVIRIN
     Dosage: 1200 MILLIGRAM, ONCE A DAY
     Route: 065
     Dates: start: 201509
  5. RIBAVIRIN. [Suspect]
     Active Substance: RIBAVIRIN
     Indication: HEPATITIS E
     Dosage: 800 MILLIGRAM, ONCE A DAY
     Route: 065
     Dates: start: 201407, end: 2014
  6. RIBAVIRIN. [Suspect]
     Active Substance: RIBAVIRIN
     Dosage: 1000 MILLIGRAM, ONCE A DAY
     Route: 065
     Dates: start: 2015, end: 2015
  7. EVEROLIMUS. [Suspect]
     Active Substance: EVEROLIMUS
     Indication: IMMUNOSUPPRESSANT DRUG THERAPY
     Dosage: 2.5 MILLIGRAM DAILY;
     Route: 065
  8. PREDNISONE. [Suspect]
     Active Substance: PREDNISONE
     Indication: IMMUNOSUPPRESSANT DRUG THERAPY
     Dosage: 10 MILLIGRAM DAILY;
     Route: 065
     Dates: start: 2015

REACTIONS (6)
  - Haemolysis [Unknown]
  - Off label use [Unknown]
  - Drug resistance [Unknown]
  - Hepatitis E [Unknown]
  - Haemoglobin decreased [Unknown]
  - Treatment failure [Unknown]

NARRATIVE: CASE EVENT DATE: 201407
